FAERS Safety Report 4468709-1 (Version None)
Quarter: 2004Q4

REPORT INFORMATION
  Report Type: 
  Country: None (occurrence: None)
  Receive Date: 20041007
  Receipt Date: 20040930
  Transmission Date: 20050328
  Serious: Yes (Other)
  Sender: FDA-Public Use
  Company Number: GB-MERCK-0410GBR00014

PATIENT
  Age: 72 Year
  Sex: Male
  Weight: 76 kg

DRUGS (3)
  1. BUTYLSCOPOLAMINE BROMIDE [Concomitant]
     Route: 065
     Dates: end: 20040908
  2. ROFECOXIB [Suspect]
     Indication: ARTHRITIS
     Route: 048
     Dates: start: 20021113, end: 20040921
  3. TRAMADOL HYDROCHLORIDE [Concomitant]
     Route: 065
     Dates: start: 20040624

REACTIONS (1)
  - COLITIS ULCERATIVE [None]
